FAERS Safety Report 5741895-9 (Version None)
Quarter: 2008Q2

REPORT INFORMATION
  Report Type: 
  Country: None (occurrence: None)
  Receive Date: 20080515
  Receipt Date: 20080502
  Transmission Date: 20081010
  Serious: Yes (Hospitalization)
  Sender: FDA-Public Use
  Company Number: US023496

PATIENT
  Age: 42 Year
  Sex: Female

DRUGS (19)
  1. ACTIQ [Suspect]
     Indication: FIBROMYALGIA
     Dosage: 600 UG ONE EVERY 6 HOURS BUCCAL
     Route: 002
     Dates: start: 20060216, end: 20070320
  2. ACTIQ [Suspect]
     Indication: HEADACHE
     Dosage: 600 UG ONE EVERY 6 HOURS BUCCAL
     Route: 002
     Dates: start: 20060216, end: 20070320
  3. ACTIQ [Suspect]
     Indication: TRIGEMINAL NEURALGIA
     Dosage: 600 UG ONE EVERY 6 HOURS BUCCAL
     Route: 002
     Dates: start: 20060216, end: 20070320
  4. ACTIQ [Suspect]
     Indication: FIBROMYALGIA
     Dosage: BUCCAL
     Route: 002
     Dates: start: 20040707, end: 20050502
  5. ACTIQ [Suspect]
     Indication: HEADACHE
     Dosage: BUCCAL
     Route: 002
     Dates: start: 20040707, end: 20050502
  6. ACTIQ [Suspect]
     Indication: TRIGEMINAL NEURALGIA
     Dosage: BUCCAL
     Route: 002
     Dates: start: 20040707, end: 20050502
  7. ACTIQ [Suspect]
     Indication: HEADACHE
     Dosage: BUCCAL
     Route: 002
     Dates: start: 20050502
  8. ACTIQ [Suspect]
     Dosage: BUCCAL
     Route: 002
     Dates: start: 20040820, end: 20061102
  9. ACTIQ [Suspect]
     Dosage: BUCCAL
     Route: 002
     Dates: start: 20070129
  10. XANAX [Suspect]
     Dosage: 2 MG TID ORAL
     Route: 048
  11. XANAX [Suspect]
     Dosage: 4 MG QID ORAL
     Route: 048
     Dates: end: 20070320
  12. XANAX [Suspect]
     Dosage: ORAL
     Route: 048
     Dates: start: 20050711, end: 20060701
  13. XANAX [Suspect]
     Dosage: ORAL
     Route: 048
     Dates: start: 20060925
  14. DILAUDID [Suspect]
     Dosage: 2 MG Q4HR ORAL
     Route: 048
  15. DILAUDID [Suspect]
     Dosage: PRN ORAL
     Route: 048
     Dates: end: 20070301
  16. AMBIEN [Suspect]
     Dosage: 12.5 MG QHS ORAL
     Route: 048
     Dates: end: 20070319
  17. DEMEROL [Suspect]
     Dosage: 50 MG EVERY 6 HOURS AS NEEDED ORAL
     Route: 048
     Dates: end: 20070301
  18. CYMBALTA [Concomitant]
  19. ZANAFLEX [Concomitant]

REACTIONS (11)
  - DENTAL CARIES [None]
  - DEPENDENCE [None]
  - DRUG WITHDRAWAL SYNDROME [None]
  - EMOTIONAL DISTRESS [None]
  - MEDICATION ERROR [None]
  - OPIATES POSITIVE [None]
  - OVERDOSE [None]
  - PANIC ATTACK [None]
  - SLEEP DISORDER [None]
  - SUBSTANCE ABUSE [None]
  - TOOTH LOSS [None]
